FAERS Safety Report 7424380-8 (Version None)
Quarter: 2011Q2

REPORT INFORMATION
  Report Type: 
  Country: None (occurrence: None)
  Receive Date: 20110411
  Receipt Date: 20110407
  Transmission Date: 20111010
  Serious: Yes (Other)
  Sender: FDA-Public Use
  Company Number: USA/USA/11/0017950

PATIENT
  Sex: Female

DRUGS (1)
  1. OMEPRAZOLE MAGNESIUM [Suspect]
     Indication: DYSPEPSIA
     Dosage: 2 DOSAGE FORMS, TOTAL, ORAL
     Route: 048
     Dates: start: 20110406, end: 20110407

REACTIONS (4)
  - BACK PAIN [None]
  - MALAISE [None]
  - VOMITING [None]
  - NECK PAIN [None]
